FAERS Safety Report 7421494-3 (Version None)
Quarter: 2011Q2

REPORT INFORMATION
  Report Type: 
  Country: None (occurrence: None)
  Receive Date: 20110418
  Receipt Date: 20110407
  Transmission Date: 20111010
  Serious: Yes (Hospitalization)
  Sender: FDA-Public Use
  Company Number: US-ASTRAZENECA-2010SE60346

PATIENT
  Age: 79 Year
  Sex: Female

DRUGS (2)
  1. PRILOSEC [Suspect]
     Route: 048
  2. NEXIUM [Suspect]
     Route: 048

REACTIONS (9)
  - POST PROCEDURAL COMPLICATION [None]
  - DRUG DOSE OMISSION [None]
  - ARTHROPATHY [None]
  - HYPOACUSIS [None]
  - MALAISE [None]
  - DRUG INEFFECTIVE [None]
  - HIATUS HERNIA [None]
  - VOMITING [None]
  - GASTROOESOPHAGEAL REFLUX DISEASE [None]
